FAERS Safety Report 14665613 (Version 1)
Quarter: 2018Q1

REPORT INFORMATION
  Report Type: Spontaneous
  Country: CA (occurrence: CA)
  Receive Date: 20180321
  Receipt Date: 20180321
  Transmission Date: 20180509
  Serious: Yes (Life-Threatening, Disabling)
  Sender: FDA-Public Use
  Company Number: CA-BAYER-2018-051475

PATIENT
  Age: 41 Year
  Sex: Female
  Weight: 54.42 kg

DRUGS (1)
  1. MIRENA [Suspect]
     Active Substance: LEVONORGESTREL
     Dosage: 20 MCG/24HR, CONT
     Route: 015

REACTIONS (9)
  - Nausea [Unknown]
  - Weight decreased [Unknown]
  - Panic attack [Unknown]
  - Suicidal ideation [Unknown]
  - Depression [Unknown]
  - Decreased activity [Unknown]
  - Impaired work ability [Unknown]
  - Vomiting [Unknown]
  - Anxiety [Unknown]
